FAERS Safety Report 17241770 (Version 3)
Quarter: 2020Q1

REPORT INFORMATION
  Report Type: Spontaneous
  Country: US (occurrence: US)
  Receive Date: 20200107
  Receipt Date: 20200214
  Transmission Date: 20200409
  Serious: Yes (Other)
  Sender: FDA-Public Use
  Company Number: US-PFIZER INC-2020002078

PATIENT
  Age: 91 Year
  Sex: Female

DRUGS (1)
  1. XELJANZ XR [Suspect]
     Active Substance: TOFACITINIB CITRATE
     Indication: BONE DISORDER
     Dosage: 11 MG, 1X/DAY
     Dates: start: 20191227

REACTIONS (7)
  - Off label use [Unknown]
  - Fall [Unknown]
  - Contusion [Unknown]
  - Product use in unapproved indication [Unknown]
  - Rib fracture [Recovered/Resolved]
  - Anaemia [Unknown]
  - Ligament sprain [Unknown]

NARRATIVE: CASE EVENT DATE: 20191227
